FAERS Safety Report 8909057 (Version 4)
Quarter: 2013Q4

REPORT INFORMATION
  Report Type: Report from Study
  Country: JP (occurrence: JP)
  Receive Date: 20121114
  Receipt Date: 20131111
  Transmission Date: 20140711
  Serious: Yes (Other)
  Sender: FDA-Public Use
  Company Number: JP-VERTEX PHARMACEUTICAL INC.-2012-024444

PATIENT
  Age: 47 Year
  Sex: Male

DRUGS (13)
  1. VX-950 (TELAPREVIR) [Suspect]
     Indication: CHRONIC HEPATITIS C
     Dosage: 2250 MG, QD
     Route: 048
     Dates: start: 20120814, end: 20121104
  2. PEGINTRON [Suspect]
     Indication: CHRONIC HEPATITIS C
     Dosage: 100 ?G,QW
     Route: 058
     Dates: start: 20120814, end: 20120814
  3. PEGINTRON [Suspect]
     Dosage: 80 ?G,QW
     Route: 058
     Dates: start: 20120821, end: 20121023
  4. PEGINTRON [Suspect]
     Dosage: 50 ?G, QW
     Route: 058
     Dates: start: 20121029, end: 20121029
  5. PEGINTRON [Suspect]
     Dosage: 80 ?G, QW
     Route: 058
     Dates: start: 20121105, end: 20121231
  6. PEGINTRON [Suspect]
     Dosage: 40 ?G, QW
     Route: 058
     Dates: start: 20130107, end: 20130107
  7. PEGINTRON [Suspect]
     Dosage: 80 ?G, QW
     Route: 058
     Dates: start: 20130115, end: 20130121
  8. RIBAVIRIN [Suspect]
     Indication: CHRONIC HEPATITIS C
     Dosage: 800 MG, QD
     Route: 048
     Dates: start: 20120814, end: 20130128
  9. PROMAC [Concomitant]
     Dosage: 150 MG, QD
     Route: 048
     Dates: end: 20130128
  10. SALOBEL [Concomitant]
     Dosage: 200 MG, QD
     Route: 048
     Dates: end: 20121104
  11. SALOBEL [Concomitant]
     Dosage: 100 MG, QD
     Route: 048
     Dates: start: 20121105, end: 20130128
  12. GLYCYRON [Concomitant]
     Dosage: 3 DF, QD
     Route: 048
     Dates: end: 20130128
  13. ACINON [Concomitant]
     Dosage: 300 MG, QD
     Route: 048
     Dates: end: 20130128

REACTIONS (2)
  - White blood cell count decreased [Recovered/Resolved]
  - White blood cell count decreased [Recovered/Resolved]
